FAERS Safety Report 5207505-4 (Version None)
Quarter: 2007Q1

REPORT INFORMATION
  Report Type: 
  Country: None (occurrence: None)
  Receive Date: 20070112
  Receipt Date: 20070111
  Transmission Date: 20070707
  Serious: Yes (Hospitalization)
  Sender: FDA-Public Use
  Company Number: AU-ROXANE LABORATORIES, INC-2007-DE-00198GD

PATIENT
  Age: 35 Year
  Sex: Male

DRUGS (3)
  1. NAPROXEN [Suspect]
     Route: 048
  2. BACLOFEN [Suspect]
     Route: 048
  3. TEMAZEPAM [Suspect]
     Route: 048

REACTIONS (2)
  - POISONING [None]
  - TACHYCARDIA [None]
